FAERS Safety Report 20535640 (Version 1)
Quarter: 2022Q1

REPORT INFORMATION
  Report Type: Report from Study
  Country: CA (occurrence: CA)
  Receive Date: 20220302
  Receipt Date: 20220302
  Transmission Date: 20220423
  Serious: Yes (Other)
  Sender: FDA-Public Use
  Company Number: CA-JNJFOC-20210949155

PATIENT
  Sex: Male
  Weight: 105.2 kg

DRUGS (2)
  1. REMICADE [Suspect]
     Active Substance: INFLIXIMAB
     Indication: Ankylosing spondylitis
     Route: 042
     Dates: start: 20080617
  2. PREDNISONE [Concomitant]
     Active Substance: PREDNISONE
     Indication: Product used for unknown indication
     Route: 065

REACTIONS (7)
  - Oxygen saturation decreased [Unknown]
  - Cyanosis [Unknown]
  - Infusion related reaction [Unknown]
  - Asthenia [Unknown]
  - Lethargy [Unknown]
  - Tachypnoea [Unknown]
  - Pallor [Unknown]

NARRATIVE: CASE EVENT DATE: 20210101
